FAERS Safety Report 24524184 (Version 8)
Quarter: 2025Q2

REPORT INFORMATION
  Report Type: Spontaneous
  Country: US (occurrence: US)
  Receive Date: 20241018
  Receipt Date: 20250411
  Transmission Date: 20250716
  Serious: Yes (Hospitalization)
  Sender: IPSEN
  Company Number: US-IPSEN Group, Research and Development-2024-20722

PATIENT
  Age: 42 Year
  Sex: Male
  Weight: 71.2 kg

DRUGS (11)
  1. ONIVYDE [Suspect]
     Active Substance: IRINOTECAN HYDROCHLORIDE
     Indication: Colorectal cancer
     Route: 042
     Dates: start: 20240405, end: 20240903
  2. FLUOROURACIL [Suspect]
     Active Substance: FLUOROURACIL
     Indication: Colorectal cancer
     Route: 042
     Dates: start: 20240405, end: 20240905
  3. LEUCOVORIN [Suspect]
     Active Substance: LEUCOVORIN\LEUCOVORIN CALCIUM
     Indication: Colorectal cancer
     Route: 042
     Dates: start: 20240405, end: 20240903
  4. BEVACIZUMAB [Suspect]
     Active Substance: BEVACIZUMAB
     Indication: Colorectal cancer
     Route: 042
     Dates: start: 20240405, end: 20240903
  5. SIREXATAMAB [Suspect]
     Active Substance: SIREXATAMAB
     Indication: Colorectal cancer
     Route: 042
     Dates: start: 20240405, end: 20240903
  6. OXYCODONE HYDROCHLORIDE [Concomitant]
     Active Substance: OXYCODONE HYDROCHLORIDE
     Dates: start: 20230823
  7. POLYETHYLENE GLYCOL 3350 [Concomitant]
     Active Substance: POLYETHYLENE GLYCOL 3350
     Dates: start: 20230820
  8. ONDANSETRON HYDROCHLORIDE [Concomitant]
     Active Substance: ONDANSETRON HYDROCHLORIDE
     Dates: start: 20240405
  9. ATROPINE SULFATE [Concomitant]
     Active Substance: ATROPINE SULFATE
     Dates: start: 20240405
  10. DECADRON [Concomitant]
     Active Substance: DEXAMETHASONE
     Dates: start: 20240405
  11. DEXAMETHASONE [Concomitant]
     Active Substance: DEXAMETHASONE
     Dates: start: 20240406

REACTIONS (1)
  - Anal fistula [Recovered/Resolved]

NARRATIVE: CASE EVENT DATE: 20240930
